FAERS Safety Report 8126564-2 (Version None)
Quarter: 2012Q1

REPORT INFORMATION
  Report Type: 
  Country: None (occurrence: None)
  Receive Date: 20120210
  Receipt Date: 20120130
  Transmission Date: 20120608
  Serious: Yes (Life-Threatening, Hospitalization, Other)
  Sender: FDA-Public Use
  Company Number: NO-AMGEN-US169212

PATIENT
  Age: 56 Year
  Sex: Female

DRUGS (10)
  1. ORENCIA [Suspect]
     Indication: RHEUMATOID ARTHRITIS
     Dosage: 40 MG, UNK
     Dates: start: 20080501, end: 20100801
  2. LIPITOR [Concomitant]
     Dosage: UNK
  3. ENBREL [Suspect]
     Indication: RHEUMATOID ARTHRITIS
     Dosage: 50 MG, QWK
     Route: 051
     Dates: start: 20030401
  4. ARAVA [Suspect]
     Indication: RHEUMATOID ARTHRITIS
     Dosage: 20 MG, 1X/DAY
     Dates: start: 20101101, end: 20110101
  5. ASPIRIN [Concomitant]
  6. IMOVANE [Concomitant]
     Dosage: UNK
  7. INDERAL RETARD [Concomitant]
     Dosage: UNK
  8. ENBREL [Suspect]
     Dosage: 50 MG, QWK
     Route: 051
     Dates: start: 20050501, end: 20051201
  9. PREDNISOLONE [Concomitant]
     Indication: RHEUMATOID ARTHRITIS
     Dosage: UNK
     Dates: start: 19950501
  10. CALCIGRAN                          /00434901/ [Concomitant]
     Dosage: UNK

REACTIONS (4)
  - RHEUMATOID ARTHRITIS [None]
  - URTICARIA [None]
  - TYPE I HYPERSENSITIVITY [None]
  - ANGIOEDEMA [None]
